FAERS Safety Report 9302122 (Version 1)
Quarter: 2013Q2

REPORT INFORMATION
  Report Type: Spontaneous
  Country: GB (occurrence: GB)
  Receive Date: 20130521
  Receipt Date: 20130521
  Transmission Date: 20140414
  Serious: Yes (Other)
  Sender: FDA-Public Use
  Company Number: GB-BRISTOL-MYERS SQUIBB COMPANY-18904573

PATIENT
  Age: 33 Year
  Sex: Female

DRUGS (1)
  1. ABILIFY TABS [Suspect]
     Indication: SCHIZOPHRENIA
     Dosage: DOSE INCREASED:15MG.CURRENTLY ON 20-25MG
     Dates: start: 2006

REACTIONS (2)
  - Schizophrenia [Unknown]
  - Pregnancy [Unknown]
